FAERS Safety Report 5251245-2 (Version None)
Quarter: 2007Q1

REPORT INFORMATION
  Report Type: 
  Country: None (occurrence: None)
  Receive Date: 20070228
  Receipt Date: 20061213
  Transmission Date: 20070707
  Serious: No
  Sender: FDA-Public Use
  Company Number: US-GLAXOSMITHKLINE-A0631467A

PATIENT
  Sex: Male

DRUGS (6)
  1. LAMICTAL [Suspect]
     Indication: BIPOLAR DISORDER
     Dosage: 100MG TWICE PER DAY
     Route: 048
  2. ZOLOFT [Concomitant]
  3. REVIA [Concomitant]
  4. ANTABUSE [Concomitant]
  5. PROPRANOLOL [Concomitant]
  6. TRAZODONE HCL [Concomitant]

REACTIONS (1)
  - RASH [None]
